FAERS Safety Report 4263699-9 (Version None)
Quarter: 2004Q1

REPORT INFORMATION
  Report Type: 
  Country: None (occurrence: None)
  Receive Date: 20040102
  Receipt Date: 20031223
  Transmission Date: 20041129
  Serious: Yes (Hospitalization, Other)
  Sender: FDA-Public Use
  Company Number: HQWYE881923DEC03

PATIENT
  Age: 73 Year
  Sex: Female

DRUGS (4)
  1. INIPOMP (PANTOPRAZOLE, TABLET, DELAYED RELEASE) [Suspect]
     Dates: start: 20031006, end: 20031010
  2. DILTIAZEM HCL [Suspect]
     Indication: TACHYCARDIA
     Dosage: ORAL
     Route: 048
     Dates: start: 20030912, end: 20031010
  3. MOTILIUM [Suspect]
     Dosage: ORAL
     Route: 048
     Dates: start: 20031006, end: 20031010
  4. PERINDOPRIL (PERINDOPRIL, ) [Suspect]
     Indication: TACHYCARDIA
     Dates: start: 20030901, end: 20031012

REACTIONS (5)
  - EOSINOPHILIA [None]
  - PYREXIA [None]
  - RASH MACULO-PAPULAR [None]
  - RASH PRURITIC [None]
  - TOXIC SKIN ERUPTION [None]
